FAERS Safety Report 5047648-1 (Version None)
Quarter: 2006Q2

REPORT INFORMATION
  Report Type: 
  Country: None (occurrence: None)
  Receive Date: 20060601
  Receipt Date: 20060210
  Transmission Date: 20061013
  Serious: No
  Sender: FDA-Public Use
  Company Number: US200602002470

PATIENT
  Age: 43 Year
  Sex: Male

DRUGS (5)
  1. CYMBALTA [Suspect]
     Indication: PANIC ATTACK
     Dosage: 60 MG
     Dates: start: 20060209
  2. PREGABALIN (PREGABALIN) [Concomitant]
  3. SOMA [Concomitant]
  4. IBUPROFEN [Concomitant]
  5. LORTAB [Concomitant]

REACTIONS (5)
  - ANOREXIA [None]
  - FEELING JITTERY [None]
  - NAUSEA [None]
  - PARAESTHESIA [None]
  - SOMNOLENCE [None]
